FAERS Safety Report 14945956 (Version 1)
Quarter: 2018Q3

REPORT INFORMATION
  Report Type: Spontaneous
  Country: US (occurrence: US)
  Receive Date: 20180529
  Receipt Date: 20180529
  Transmission Date: 20181010
  Serious: No
  Sender: FDA-Public Use
  Company Number: US-MACLEODS PHARMACEUTICALS US LTD-MAC2018011484

PATIENT

DRUGS (1)
  1. PIOGLITAZONE AND METFORMIN HYDROCHOLRIDE [Suspect]
     Active Substance: METFORMIN HYDROCHLORIDE\PIOGLITAZONE HYDROCHLORIDE
     Indication: PRODUCT USED FOR UNKNOWN INDICATION
     Dosage: UNK, 15/500 MG
     Route: 048

REACTIONS (3)
  - Drug ineffective [Unknown]
  - Drug dispensing error [Unknown]
  - Blood glucose increased [None]
